FAERS Safety Report 9875845 (Version 1)
Quarter: 2014Q1

REPORT INFORMATION
  Report Type: Spontaneous
  Country: DE (occurrence: None)
  Receive Date: 20140204
  Receipt Date: 20140204
  Transmission Date: 20141002
  Serious: Yes (Other)
  Sender: FDA-Public Use
  Company Number: 1401-0175

PATIENT
  Age: 65 Year
  Sex: Female

DRUGS (1)
  1. EYELEA [Suspect]
     Indication: AGE-RELATED MACULAR DEGENERATION
     Route: 031
     Dates: start: 201212

REACTIONS (4)
  - Feeling abnormal [None]
  - Visual impairment [None]
  - Emotional disorder [None]
  - Haemorrhage [None]
